FAERS Safety Report 13930963 (Version 3)
Quarter: 2017Q4

REPORT INFORMATION
  Report Type: Spontaneous
  Country: IL (occurrence: IL)
  Receive Date: 20170902
  Receipt Date: 20171110
  Transmission Date: 20180320
  Serious: Yes (Hospitalization)
  Sender: FDA-Public Use
  Company Number: IL-AMGEN-ISRSP2017131645

PATIENT
  Sex: Female

DRUGS (2)
  1. XGEVA [Suspect]
     Active Substance: DENOSUMAB
     Indication: NEOPLASM MALIGNANT
     Dosage: UNK, QMO
     Route: 065
     Dates: start: 201703
  2. ALIMTA [Concomitant]
     Active Substance: PEMETREXED DISODIUM
     Indication: UNEVALUABLE EVENT
     Dosage: UNK

REACTIONS (8)
  - Malabsorption from injection site [Unknown]
  - Peripheral swelling [Not Recovered/Not Resolved]
  - Joint swelling [Unknown]
  - Wrong technique in product usage process [Unknown]
  - Unevaluable event [Unknown]
  - Swelling [Not Recovered/Not Resolved]
  - General physical health deterioration [Unknown]
  - Off label use [Unknown]

NARRATIVE: CASE EVENT DATE: 2017
